FAERS Safety Report 12262817 (Version 1)
Quarter: 2016Q2

REPORT INFORMATION
  Report Type: Spontaneous
  Country: US (occurrence: US)
  Receive Date: 20160413
  Receipt Date: 20160413
  Transmission Date: 20160815
  Serious: Yes (Other)
  Sender: FDA-Public Use
  Company Number: US-AMGEN-USASP2016044152

PATIENT
  Age: 57 Year
  Sex: Male

DRUGS (1)
  1. ENBREL [Suspect]
     Active Substance: ETANERCEPT
     Indication: RHEUMATOID ARTHRITIS
     Dosage: 50 MG, QWK
     Route: 065
     Dates: start: 2001, end: 201508

REACTIONS (7)
  - Tongue discolouration [Unknown]
  - Spinal disorder [Unknown]
  - Dysgeusia [Unknown]
  - Weight decreased [Unknown]
  - Memory impairment [Unknown]
  - Pain of skin [Unknown]
  - Skin lesion [Unknown]

NARRATIVE: CASE EVENT DATE: 20160406
